FAERS Safety Report 5921407-7 (Version None)
Quarter: 2008Q4

REPORT INFORMATION
  Report Type: 
  Country: None (occurrence: None)
  Receive Date: 20081014
  Receipt Date: 20080930
  Transmission Date: 20090506
  Serious: No
  Sender: FDA-Public Use
  Company Number: 1-16662666

PATIENT
  Age: 75 Year
  Sex: Male

DRUGS (3)
  1. AMIODARONE HCL [Suspect]
     Indication: ATRIAL FIBRILLATION
     Dosage: 200 MG, TWICE DAILY, ORAL
     Route: 048
     Dates: start: 20080101, end: 20080101
  2. SIMVASTATIN [Suspect]
     Indication: CORONARY ARTERY DISEASE
     Dosage: 40 OR 80 MG, DAILY, ORAL
     Route: 048
  3. NIACIN [Suspect]
     Indication: CORONARY ARTERY DISEASE
     Dosage: ORAL
     Route: 048

REACTIONS (2)
  - DRUG INTERACTION [None]
  - RHABDOMYOLYSIS [None]
